FAERS Safety Report 20023786 (Version 1)
Quarter: 2021Q4

REPORT INFORMATION
  Report Type: Spontaneous
  Country: CA (occurrence: CA)
  Receive Date: 20211102
  Receipt Date: 20211102
  Transmission Date: 20220303
  Serious: Yes (Life-Threatening, Hospitalization)
  Sender: FDA-Public Use
  Company Number: CA-TEVA-2021-CA-1970725

PATIENT
  Age: 16 Year
  Sex: Female

DRUGS (3)
  1. ACETAMINOPHEN [Suspect]
     Active Substance: ACETAMINOPHEN
     Indication: Completed suicide
     Route: 048
  2. PRAZOSIN [Suspect]
     Active Substance: PRAZOSIN
     Indication: Completed suicide
     Route: 048
  3. NAPROXEN [Concomitant]
     Active Substance: NAPROXEN

REACTIONS (10)
  - Depressed level of consciousness [Unknown]
  - Hypotension [Unknown]
  - Metabolic acidosis [Unknown]
  - PCO2 decreased [Unknown]
  - Vomiting [Unknown]
  - Analgesic drug level increased [Unknown]
  - Base excess increased [Unknown]
  - Blood bicarbonate [Unknown]
  - Blood lactic acid increased [Unknown]
  - International normalised ratio increased [Unknown]
